FAERS Safety Report 4632038-3 (Version None)
Quarter: 2005Q2

REPORT INFORMATION
  Report Type: 
  Country: None (occurrence: None)
  Receive Date: 20050331
  Receipt Date: 20040312
  Transmission Date: 20051028
  Serious: Yes (Hospitalization)
  Sender: FDA-Public Use
  Company Number: 200411259BCC

PATIENT
  Age: 22 Year
  Sex: Male

DRUGS (2)
  1. ALEVE [Suspect]
     Indication: SUICIDE ATTEMPT
     Dosage: 1320 MG, ONCE, ORAL
     Route: 048
     Dates: start: 20040312
  2. ZYBAN [Suspect]
     Indication: SUICIDE ATTEMPT
     Dosage: 1500 MG, ONCE, ORAL
     Route: 048
     Dates: start: 20040312

REACTIONS (1)
  - NO ADVERSE DRUG EFFECT [None]
